FAERS Safety Report 19674166 (Version 3)
Quarter: 2021Q3

REPORT INFORMATION
  Report Type: Spontaneous
  Country: US (occurrence: US)
  Receive Date: 20210809
  Receipt Date: 20210920
  Transmission Date: 20211014
  Serious: No
  Sender: FDA-Public Use
  Company Number: US-SA-2021SA261271

PATIENT
  Age: 61 Year
  Sex: Female
  Weight: 86.2 kg

DRUGS (10)
  1. VITAMIN B NOS [Concomitant]
     Active Substance: VITAMIN B
     Dosage: UNK
  2. IMVEXXY [Suspect]
     Active Substance: ESTRADIOL
     Indication: VULVOVAGINAL DISCOMFORT
     Dosage: 4 UG, Q4D BEFORE BED
     Route: 067
     Dates: start: 202107, end: 202108
  3. CALCIUM [Concomitant]
     Active Substance: CALCIUM
     Dosage: UNK
  4. KEVZARA [Suspect]
     Active Substance: SARILUMAB
     Indication: RHEUMATOID ARTHRITIS
     Dosage: 200 MG, QOW
     Route: 058
     Dates: start: 20210728, end: 2021
  5. IMVEXXY [Suspect]
     Active Substance: ESTRADIOL
     Indication: VULVOVAGINAL DRYNESS
     Dosage: 4UG, 2 TIMES PER WEEK BEFORE BED
     Route: 067
     Dates: start: 202105, end: 202107
  6. FOLIC ACID. [Concomitant]
     Active Substance: FOLIC ACID
     Dosage: UNK
  7. VITAMIN D NOS [Concomitant]
     Active Substance: VITAMIN D NOS
     Dosage: UNK
  8. IMVEXXY [Suspect]
     Active Substance: ESTRADIOL
     Dosage: 4 UG, 2X/WEEK BEFORE BED ON MONDAYS AND FRIDAYS
     Route: 067
     Dates: start: 202108
  9. KEVZARA [Suspect]
     Active Substance: SARILUMAB
     Indication: VULVOVAGINAL DRYNESS
  10. KEVZARA [Suspect]
     Active Substance: SARILUMAB
     Indication: VULVOVAGINAL DISCOMFORT

REACTIONS (3)
  - Night sweats [Recovering/Resolving]
  - Product use in unapproved indication [Unknown]
  - Drug hypersensitivity [Unknown]

NARRATIVE: CASE EVENT DATE: 2021
